FAERS Safety Report 17516884 (Version 1)
Quarter: 2020Q1

REPORT INFORMATION
  Report Type: Spontaneous
  Country: JP (occurrence: JP)
  Receive Date: 20200309
  Receipt Date: 20200309
  Transmission Date: 20200409
  Serious: Yes (Hospitalization, Other)
  Sender: FDA-Public Use
  Company Number: JP-PFIZER INC-2020096784

PATIENT
  Age: 73 Year
  Sex: Female

DRUGS (1)
  1. AMPICILLIN SODIUM/SULBACTAM SODIUM [Suspect]
     Active Substance: AMPICILLIN SODIUM\SULBACTAM SODIUM
     Indication: CELLULITIS
     Dosage: 3 G, 3X/DAY (Q8H)

REACTIONS (3)
  - Enterocolitis haemorrhagic [Recovering/Resolving]
  - Off label use [Unknown]
  - Product use in unapproved indication [Unknown]
